FAERS Safety Report 17652786 (Version 1)
Quarter: 2020Q2

REPORT INFORMATION
  Report Type: Other
  Country: DE (occurrence: DE)
  Receive Date: 20200409
  Receipt Date: 20200409
  Transmission Date: 20200713
  Serious: Yes (Other)
  Sender: FDA-Public Use
  Company Number: DE-OSMOTICA_PHARMACEUTICAL_US_LLC-POI0573202000282

PATIENT
  Age: 4 Year
  Sex: Male

DRUGS (1)
  1. DIVIGEL [Suspect]
     Active Substance: ESTRADIOL
     Indication: PRODUCT USED FOR UNKNOWN INDICATION
     Route: 062
     Dates: start: 2019, end: 2019

REACTIONS (1)
  - Pseudoprecocious puberty [Recovering/Resolving]

NARRATIVE: CASE EVENT DATE: 2019
